FAERS Safety Report 4884378-0 (Version None)
Quarter: 2006Q1

REPORT INFORMATION
  Report Type: 
  Country: None (occurrence: None)
  Receive Date: 20060117
  Receipt Date: 20060117
  Transmission Date: 20060701
  Serious: Yes (Other)
  Sender: FDA-Public Use
  Company Number: None

PATIENT
  Sex: Female
  Weight: 24.1 kg

DRUGS (4)
  1. PANCREATIN TRIPLE STRENGTH CAP [Suspect]
     Indication: CYSTIC FIBROSIS
     Dosage: 3 CAPS MEALS 2 CAPS SNACKS
     Dates: start: 20030301, end: 20050223
  2. PANCREATIN TRIPLE STRENGTH CAP [Suspect]
     Indication: CYSTIC FIBROSIS
     Dosage: 3 CAPS MEALS 2 CAPS SNACKS
     Dates: start: 20050223, end: 20060104
  3. PANCREATIN TRIPLE STRENGTH CAP [Suspect]
     Indication: CYSTIC FIBROSIS
     Dosage: 3 CAPS MEALS 2 CAPS SNACKS
     Dates: start: 20060104
  4. ZANTAC [Concomitant]

REACTIONS (2)
  - FREQUENT BOWEL MOVEMENTS [None]
  - WEIGHT GAIN POOR [None]
